FAERS Safety Report 21825617 (Version 4)
Quarter: 2023Q2

REPORT INFORMATION
  Report Type: Spontaneous
  Country: US (occurrence: US)
  Receive Date: 20230105
  Receipt Date: 20230504
  Transmission Date: 20230722
  Serious: Yes (Hospitalization, Other)
  Sender: FDA-Public Use
  Company Number: US-BRISTOL-MYERS SQUIBB COMPANY-2023-001829

PATIENT
  Age: 70 Year
  Sex: Female

DRUGS (2)
  1. POMALYST [Suspect]
     Active Substance: POMALIDOMIDE
     Indication: Plasma cell myeloma
     Dosage: DAILY ON DAYS 1-21DAYS THEN 7DAYS OFF, TAKE 1 CAPSULE BY MOUTH EVERY DAY ON. TAKE 1 CAPSULE BY MOUTH
     Route: 048
     Dates: start: 20190723
  2. POMALYST [Suspect]
     Active Substance: POMALIDOMIDE
     Dosage: FREQUENCY: TAKE 1 CAPSULE BY MOUTH EVERY DAY ON.
     Route: 048
     Dates: start: 20191105

REACTIONS (2)
  - Pneumonia [Recovered/Resolved]
  - Migraine [Recovering/Resolving]
